FAERS Safety Report 10094781 (Version 1)
Quarter: 2014Q2

REPORT INFORMATION
  Report Type: Spontaneous
  Country: US (occurrence: US)
  Receive Date: 20140422
  Receipt Date: 20140422
  Transmission Date: 20141212
  Serious: No
  Sender: FDA-Public Use
  Company Number: US-TEVA-476596USA

PATIENT
  Age: 41 Year
  Sex: Female
  Weight: 99.88 kg

DRUGS (6)
  1. COPAXONE [Suspect]
     Indication: RELAPSING-REMITTING MULTIPLE SCLEROSIS
     Dates: start: 20140405
  2. METFORMIN [Concomitant]
     Indication: DIABETES MELLITUS
  3. ATENOLOL [Concomitant]
     Indication: HYPERTENSION
  4. VITAMIN E [Concomitant]
  5. TAMIN B12 [Concomitant]
  6. VITAMIN D [Concomitant]

REACTIONS (2)
  - Dizziness [Recovered/Resolved]
  - Blood glucose decreased [Recovered/Resolved]
